FAERS Safety Report 26088689 (Version 1)
Quarter: 2025Q4

REPORT INFORMATION
  Report Type: Spontaneous
  Country: EU (occurrence: EU)
  Receive Date: 20251125
  Receipt Date: 20251125
  Transmission Date: 20260117
  Serious: Yes (Hospitalization, Other)
  Sender: SANDOZ
  Company Number: EU-ROCHE-10000309618

PATIENT

DRUGS (6)
  1. BEVACIZUMAB [Suspect]
     Active Substance: BEVACIZUMAB
     Indication: Neoplasm
     Dosage: ON 18-NOV-2024, MOST RECENT DOSE OF CANCER TREATMENTPRIOR TO AE/SAE ONSET: 400 MG.
     Route: 042
     Dates: start: 20231218
  2. BEVACIZUMAB [Suspect]
     Active Substance: BEVACIZUMAB
     Dosage: ON 18-NOV-2024, MOST RECENT DOSE OF CANCER TREATMENTPRIOR TO AE/SAE ONSET: 700 MG.
     Route: 042
     Dates: start: 20231218
  3. BEVACIZUMAB [Suspect]
     Active Substance: BEVACIZUMAB
     Dosage: DATE OF MOST RECENT DOSE OF CANCER TREATMENTPRIOR TO AE/SAE ONSET: 07-MAY2024, 10-JUN-2025DOSE OF LA
     Route: 042
     Dates: start: 20250514
  4. CAPECITABINE [Suspect]
     Active Substance: CAPECITABINE
     Indication: Neoplasm
     Dosage: 2 DAY, DATE OF MOST RECENT DOSE OF CANCER TREATMENTPRIOR TO AE/SAE ONSET: 07-MAY2024DOSE OF LAST CAN
     Route: 048
     Dates: start: 20231121
  5. IRINOTECAN [Suspect]
     Active Substance: IRINOTECAN
     Indication: Neoplasm
     Dosage: THERAPY START DATE: 16-SEP-2024
     Route: 042
  6. OXALIPLATIN [Suspect]
     Active Substance: OXALIPLATIN
     Indication: Neoplasm
     Dosage: DATE OF MOST RECENT DOSE OF CANCER TREATMENTPRIOR TO AE/SAE ONSET: 7-MAY2024DOSE OF LAST CANCER TREA
     Route: 042
     Dates: start: 20231120

REACTIONS (3)
  - Nephrolithiasis [Recovered/Resolved]
  - Neutropenia [Recovered/Resolved]
  - Respiratory tract infection [Recovered/Resolved]

NARRATIVE: CASE EVENT DATE: 20240527
